FAERS Safety Report 22241283 (Version 2)
Quarter: 2023Q2

REPORT INFORMATION
  Report Type: Spontaneous
  Country: TR (occurrence: TR)
  Receive Date: 20230421
  Receipt Date: 20230512
  Transmission Date: 20230721
  Serious: Yes (Life-Threatening)
  Sender: FDA-Public Use
  Company Number: TR-LGC-011899

PATIENT
  Age: 29 Year
  Sex: Female
  Weight: 72 kg

DRUGS (1)
  1. FACTIVE [Suspect]
     Active Substance: GEMIFLOXACIN MESYLATE
     Indication: Sinusitis
     Route: 048
     Dates: start: 20230328, end: 20230403

REACTIONS (4)
  - Rash [Unknown]
  - Urticaria [Unknown]
  - Thermal burn [Unknown]
  - Wound [Unknown]

NARRATIVE: CASE EVENT DATE: 20230404
